FAERS Safety Report 24332078 (Version 1)
Quarter: 2024Q3

REPORT INFORMATION
  Report Type: Other
  Country: GB (occurrence: GB)
  Receive Date: 20240918
  Receipt Date: 20240918
  Transmission Date: 20241016
  Serious: Yes (Hospitalization, Other)
  Sender: PL DEVELOPMENTS
  Company Number: GB-P+L Developments of Newyork Corporation-2161742

PATIENT
  Age: 41 Year
  Sex: Male

DRUGS (5)
  1. IBUPROFEN [Suspect]
     Active Substance: IBUPROFEN
     Indication: Spondylitis
  2. CODEINE SULFATE [Suspect]
     Active Substance: CODEINE SULFATE
  3. AZATHIOPRINE [Concomitant]
     Active Substance: AZATHIOPRINE
  4. INFLIXIMAB [Concomitant]
     Active Substance: INFLIXIMAB
  5. ADALIMUMAB [Concomitant]
     Active Substance: ADALIMUMAB

REACTIONS (2)
  - Intestinal diaphragm disease [Recovered/Resolved]
  - Self-medication [Unknown]
